FAERS Safety Report 8163774-2 (Version None)
Quarter: 2012Q1

REPORT INFORMATION
  Report Type: 
  Country: None (occurrence: None)
  Receive Date: 20120224
  Receipt Date: 20120217
  Transmission Date: 20120608
  Serious: Yes (Hospitalization)
  Sender: FDA-Public Use
  Company Number: PHHY2012IT014672

PATIENT
  Sex: Female
  Weight: 47 kg

DRUGS (4)
  1. LEVOFLOXACIN [Concomitant]
     Dosage: 500 MG, UNK
  2. AFINITOR [Suspect]
     Indication: NEUROENDOCRINE TUMOUR
     Dosage: 10 MG, QD
     Route: 048
     Dates: start: 20100603, end: 20120204
  3. PEPTAZOL [Concomitant]
  4. SANDOSTATIN LAR [Suspect]
     Indication: NEUROENDOCRINE TUMOUR
     Dosage: 30 MG, QMO
     Route: 030
     Dates: start: 20100603

REACTIONS (3)
  - PYREXIA [None]
  - COUGH [None]
  - PNEUMONITIS [None]
